FAERS Safety Report 5377469-1 (Version None)
Quarter: 2007Q3

REPORT INFORMATION
  Report Type: 
  Country: None (occurrence: None)
  Receive Date: 20070703
  Receipt Date: 20070627
  Transmission Date: 20080115
  Serious: Yes (Hospitalization)
  Sender: FDA-Public Use
  Company Number: JP-AMGEN-US224336

PATIENT
  Sex: Female
  Weight: 50 kg

DRUGS (8)
  1. ENBREL [Suspect]
     Indication: RHEUMATOID ARTHRITIS
     Route: 058
     Dates: start: 20060901, end: 20070326
  2. ENBREL [Suspect]
     Dosage: UNSPECIFIED
     Route: 058
     Dates: start: 20070101
  3. PREDNISOLONE [Suspect]
     Indication: RHEUMATOID ARTHRITIS
     Dosage: UNSPECIFIED
     Route: 048
  4. MOBIC [Concomitant]
     Indication: RHEUMATOID ARTHRITIS
     Dosage: UNSPECIFIED
     Route: 048
  5. BONALON [Concomitant]
     Dosage: UNSPECIFIED
     Route: 048
  6. AMLODIN [Concomitant]
     Dosage: UNSPECIFIED
     Route: 048
  7. MAGNESIUM OXIDE [Concomitant]
     Dosage: UNSPECIFIED
     Route: 048
  8. TAKEPRON [Concomitant]
     Dosage: UNSPECIFIED
     Route: 048

REACTIONS (1)
  - PELVIC FRACTURE [None]
